FAERS Safety Report 26146806 (Version 1)
Quarter: 2025Q4

REPORT INFORMATION
  Report Type: Spontaneous
  Country: EU (occurrence: EU)
  Receive Date: 20251211
  Receipt Date: 20251211
  Transmission Date: 20260118
  Serious: Yes (Other)
  Sender: PFIZER
  Company Number: None

PATIENT
  Age: 54 Year
  Sex: Male

DRUGS (8)
  1. PACLITAXEL [Suspect]
     Active Substance: PACLITAXEL
     Indication: Squamous cell carcinoma of lung
     Dosage: 354 MG, 1X/DAY (C2)
     Route: 042
     Dates: start: 20250603, end: 20250603
  2. RANITIDINE [Suspect]
     Active Substance: RANITIDINE
     Indication: Premedication
     Dosage: 50 MG, SINGLE (C2)
     Route: 042
     Dates: start: 20250603, end: 20250603
  3. POLARAMINE [Concomitant]
     Active Substance: DEXCHLORPHENIRAMINE MALEATE
     Dosage: 5 MG, SINGLE (C2)
     Route: 042
     Dates: start: 20250603, end: 20250603
  4. ONDANSETRON [Concomitant]
     Active Substance: ONDANSETRON
     Indication: Prophylaxis of nausea and vomiting
     Dosage: 8 MG, SINGLE (C2)
     Route: 042
     Dates: start: 20250603, end: 20250603
  5. APREPITANT [Concomitant]
     Active Substance: APREPITANT
     Indication: Prophylaxis of nausea and vomiting
     Dosage: 1 DF, SINGLE (C2)
     Route: 048
     Dates: start: 20250603, end: 20250603
  6. APREPITANT [Concomitant]
     Active Substance: APREPITANT
     Indication: Prophylaxis of nausea and vomiting
     Dosage: C2
     Route: 048
     Dates: start: 20250603, end: 20250603
  7. DEXAMETHASONE [Concomitant]
     Active Substance: DEXAMETHASONE
     Indication: Prophylaxis of nausea and vomiting
     Dosage: 12 MG, SINGLE (C2)
     Route: 042
     Dates: start: 20250603, end: 20250603
  8. PEMBROLIZUMAB [Concomitant]
     Active Substance: PEMBROLIZUMAB
     Dosage: 200 MG, SINGLE (C2)
     Route: 042
     Dates: start: 20250603, end: 20250603

REACTIONS (2)
  - Loss of consciousness [Recovered/Resolved]
  - Rash pruritic [Recovered/Resolved]

NARRATIVE: CASE EVENT DATE: 20250603
